FAERS Safety Report 13164273 (Version 1)
Quarter: 2017Q1

REPORT INFORMATION
  Report Type: Spontaneous
  Country: DE (occurrence: DE)
  Receive Date: 20170130
  Receipt Date: 20170130
  Transmission Date: 20170428
  Serious: Yes (Other)
  Sender: FDA-Public Use
  Company Number: DE-TEVA-732117GER

PATIENT
  Age: 70 Year
  Sex: Male

DRUGS (1)
  1. QUINAPRIL. [Suspect]
     Active Substance: QUINAPRIL
     Dosage: 20 MILLIGRAM DAILY;
     Route: 065

REACTIONS (3)
  - Drug prescribing error [Unknown]
  - Drug intolerance [Unknown]
  - Blood pressure increased [Unknown]
